FAERS Safety Report 15187130 (Version 1)
Quarter: 2018Q3

REPORT INFORMATION
  Report Type: Report from Study
  Country: US (occurrence: US)
  Receive Date: 20180723
  Receipt Date: 20180723
  Transmission Date: 20181010
  Serious: No
  Sender: FDA-Public Use
  Company Number: US-EXELIXIS-CABO-18012767

PATIENT
  Sex: Male

DRUGS (1)
  1. CABOMETYX [Suspect]
     Active Substance: CABOZANTINIB S-MALATE
     Indication: RENAL CANCER
     Dosage: 60 MG, UNK

REACTIONS (6)
  - Nausea [Unknown]
  - Erythema [Unknown]
  - Glossodynia [Unknown]
  - Dyspnoea [Recovering/Resolving]
  - Dysgeusia [Unknown]
  - Blood pressure increased [Unknown]
